FAERS Safety Report 4701076-4 (Version None)
Quarter: 2005Q2

REPORT INFORMATION
  Report Type: 
  Country: None (occurrence: None)
  Receive Date: 20050628
  Receipt Date: 20041005
  Transmission Date: 20051028
  Serious: Yes (Death, Other)
  Sender: FDA-Public Use
  Company Number: ESWYE089005OCT04

PATIENT
  Age: 75 Year
  Sex: Male

DRUGS (2)
  1. ENBREL [Suspect]
     Indication: SPONDYLOARTHROPATHY
     Route: 058
     Dates: start: 20040701, end: 20040801
  2. RITUXIMAB [Suspect]
     Dates: start: 20040801

REACTIONS (3)
  - ACUTE MYELOID LEUKAEMIA [None]
  - ANAPHYLACTIC SHOCK [None]
  - URINARY TRACT INFECTION [None]
